FAERS Safety Report 16861841 (Version 1)
Quarter: 2019Q4

REPORT INFORMATION
  Report Type: Spontaneous
  Country: US (occurrence: US)
  Receive Date: 20190927
  Receipt Date: 20190927
  Transmission Date: 20200122
  Serious: Yes (Disabling)
  Sender: FDA-Public Use
  Company Number: None

PATIENT
  Age: 74 Year
  Sex: Male
  Weight: 83.25 kg

DRUGS (1)
  1. LOSARTAN GENERIC FOR COZAAR [Suspect]
     Active Substance: LOSARTAN POTASSIUM
     Indication: CARDIAC DISORDER
     Dosage: ?          QUANTITY:1 TABLET(S);?
     Route: 048

REACTIONS (4)
  - Product quality issue [None]
  - Recalled product administered [None]
  - Acne [None]
  - Pustule [None]

NARRATIVE: CASE EVENT DATE: 20190920
